FAERS Safety Report 16442431 (Version 1)
Quarter: 2019Q2

REPORT INFORMATION
  Report Type: Spontaneous
  Country: US (occurrence: US)
  Receive Date: 20190617
  Receipt Date: 20190617
  Transmission Date: 20190711
  Serious: No
  Sender: FDA-Public Use
  Company Number: US-ELI_LILLY_AND_COMPANY-US201906002772

PATIENT
  Sex: Female

DRUGS (2)
  1. EMGALITY [Suspect]
     Active Substance: GALCANEZUMAB-GNLM
     Indication: MIGRAINE
     Dosage: 1 DOSAGE FORM, UNKNOWN
     Route: 065
     Dates: start: 201812
  2. EMGALITY [Suspect]
     Active Substance: GALCANEZUMAB-GNLM
     Indication: CLUSTER HEADACHE
     Dosage: 1 DOSAGE FORM
     Route: 065

REACTIONS (8)
  - Anxiety [Unknown]
  - Adverse drug reaction [Unknown]
  - Injection site erythema [Unknown]
  - Infection [Unknown]
  - Injection site pain [Unknown]
  - Injection site warmth [Unknown]
  - Hypersensitivity [Unknown]
  - Injection site swelling [Unknown]

NARRATIVE: CASE EVENT DATE: 201904
